FAERS Safety Report 9940690 (Version 1)
Quarter: 2014Q1

REPORT INFORMATION
  Report Type: Report from Study
  Country: US (occurrence: US)
  Receive Date: 20140303
  Receipt Date: 20140303
  Transmission Date: 20141002
  Serious: Yes (Death, Hospitalization)
  Sender: FDA-Public Use
  Company Number: US-US-EMD SERONO, INC.-7272339

PATIENT
  Sex: Male

DRUGS (1)
  1. REBIF [Suspect]
     Indication: MULTIPLE SCLEROSIS
     Route: 058
     Dates: start: 20020501

REACTIONS (6)
  - Pneumonia [Fatal]
  - Pneumothorax [Unknown]
  - Pulmonary embolism [Unknown]
  - Intestinal obstruction [Unknown]
  - Haemorrhage [Unknown]
  - Weight decreased [Unknown]
